FAERS Safety Report 9031023 (Version 1)
Quarter: 2013Q1

REPORT INFORMATION
  Report Type: Report from Study
  Country: GB (occurrence: GB)
  Receive Date: 20130123
  Receipt Date: 20130123
  Transmission Date: 20140127
  Serious: Yes (Other)
  Sender: FDA-Public Use
  Company Number: GB-JNJFOC-20130109190

PATIENT
  Age: 57 Year
  Sex: Male

DRUGS (1)
  1. USTEKINUMAB [Suspect]
     Indication: PSORIASIS
     Route: 058
     Dates: start: 201203

REACTIONS (4)
  - Fatigue [Unknown]
  - Epistaxis [Unknown]
  - Oedema peripheral [Unknown]
  - Lethargy [Unknown]
